FAERS Safety Report 16751929 (Version 1)
Quarter: 2019Q3

REPORT INFORMATION
  Report Type: Spontaneous
  Country: NL (occurrence: NL)
  Receive Date: 20190828
  Receipt Date: 20190828
  Transmission Date: 20191005
  Serious: Yes (Disabling)
  Sender: FDA-Public Use
  Company Number: NL-TEVA-2019-NL-1097388

PATIENT
  Age: 57 Year
  Sex: Male
  Weight: 65 kg

DRUGS (24)
  1. METOPROLOL 100 MG [Concomitant]
     Active Substance: METOPROLOL
     Dosage: 100 MILLIGRAM, 3DD1 PER PROBE
  2. SPIRONOLACTON 50 MG [Concomitant]
     Active Substance: SPIRONOLACTONE
     Dosage: 50 MILLIGRAM, 1DD1 PER PROBE
  3. IPRAMOL 2.5 ML [Concomitant]
     Dosage: 1 DOSAGE FORMS, 6DD ATOMIZE
  4. PARACETAMOL 1000 MG [Concomitant]
     Dosage: 1 DOSAGE FORMS, 4DD PER PROBE
  5. MOVICOLON 27.6 GRAM [Concomitant]
     Dosage: 1 DOSAGE FORMS,  2DD PER PROBE
  6. SEVALAMEER 2400 MG [Concomitant]
     Dosage: 2400 MILLIGRAM, 3DD1 PER PROBE
  7. BUMETANIDE 5 MG [Concomitant]
     Dosage: 5 MILLIGRAM, 2DD1 PER PROBE
  8. LINEZOLID 600 MG [Concomitant]
     Active Substance: LINEZOLID
     Dosage: 1DOSAGE FORMS, 2DD IV
  9. OXYCODON 5 MG [Concomitant]
     Dosage: 1 DOSAGE FORMS, IF NECESSARY FOR WOUND CARE OR TRANSFERS
  10. NATRIUMCHLORIDE 3% [Concomitant]
     Dosage: 1 DOSAGE FORMS, 4DD ATOMTIALS
  11. VANCOMYCINE INFUSIEVLOEISTOF, 20,833 MG/ML (MILLIGRAM PER MILLILITER) [Suspect]
     Active Substance: VANCOMYCIN
     Indication: ENTEROCOCCAL INFECTION
     Dosage: 1 DOSAGE FORMS, INITIAL 1000 MG/24 HOURS, AFTERWARDS ON LED MIRROR
     Dates: start: 20190625, end: 20190715
  12. DOXAZOSINE 8 MG [Concomitant]
     Dosage: 8 MILLIGRAM, 1DD1 PER PROBE
  13. HALOPERIDOL. [Concomitant]
     Active Substance: HALOPERIDOL
     Dosage: 1 DOSAGE FORMS, 3DD 0.5-0.5-2 MG IV
  14. VITAMINE CAPS DIALYSE 1 CAPSULE [Concomitant]
  15. THIAMINE 100 MG [Concomitant]
     Dosage: 100 MILLIGRAM, 1DD1 IV
  16. AMLODIPINE 10 MG [Concomitant]
     Active Substance: AMLODIPINE BESYLATE
     Dosage: 10 MILLIGRAM, 1DD1 PER PROBE
  17. VANCOMYCINE INFUSIEVLOEISTOF, 20,833 MG/ML (MILLIGRAM PER MILLILITER) [Suspect]
     Active Substance: VANCOMYCIN
     Indication: ABDOMINAL ABSCESS
  18. NORTRIPTYLINE 25 MG [Concomitant]
     Dosage: 25 MILLIGRAM, 1DD1 PER PROBE
  19. CLOPIDOGREL [Concomitant]
     Active Substance: CLOPIDOGREL BISULFATE
     Dosage: 75 MILLIGRAM, 1DD1 PER PROBE
  20. VANCOMYCINE INFUSIEVLOEISTOF, 20,833 MG/ML (MILLIGRAM PER MILLILITER) [Suspect]
     Active Substance: VANCOMYCIN
     Indication: ARTERITIS
  21. FUROSEMIDE. [Concomitant]
     Active Substance: FUROSEMIDE
     Dosage: 1 DOSAGE FORMS, FROM PERFUSOR 120 MG/DAY TO BOLUSES 40 MG 1DD, SHOOTING
  22. PERINDOPRIL 4 MG [Concomitant]
     Dosage: 4 MILLIGRAM, 1DD PER PROBE
  23. ERYTROMYCINE [Concomitant]
     Active Substance: ERYTHROMYCIN
  24. FENPROCOUMON 3 MG [Concomitant]
     Dosage: 3 MILLIGRAM, 1DD1 PER PROBE

REACTIONS (1)
  - Deafness neurosensory [Not Recovered/Not Resolved]

NARRATIVE: CASE EVENT DATE: 20190715
